FAERS Safety Report 4900824-8 (Version None)
Quarter: 2006Q1

REPORT INFORMATION
  Report Type: 
  Country: None (occurrence: None)
  Receive Date: 20060201
  Receipt Date: 20060119
  Transmission Date: 20060701
  Serious: Yes (Death, Hospitalization)
  Sender: FDA-Public Use
  Company Number: GB200601003085

PATIENT
  Age: 28 Year
  Sex: Male

DRUGS (1)
  1. ZYPREXA [Suspect]
     Indication: PSYCHOTIC DISORDER
     Dosage: 20 MG,

REACTIONS (2)
  - ASPHYXIA [None]
  - CONVULSION [None]
